FAERS Safety Report 12272122 (Version 3)
Quarter: 2016Q3

REPORT INFORMATION
  Report Type: Spontaneous
  Country: US (occurrence: US)
  Receive Date: 20160415
  Receipt Date: 20160719
  Transmission Date: 20161109
  Serious: Yes (Other)
  Sender: FDA-Public Use
  Company Number: US-TEVA-651464USA

PATIENT
  Age: 56 Year
  Sex: Female

DRUGS (1)
  1. ZECUITY [Suspect]
     Active Substance: SUMATRIPTAN SUCCINATE
     Indication: MIGRAINE
     Route: 062
     Dates: start: 201603, end: 201603

REACTIONS (8)
  - Application site erythema [Recovered/Resolved]
  - Application site vesicles [Recovered/Resolved]
  - Application site pain [Recovered/Resolved]
  - Application site discomfort [Recovered/Resolved]
  - Application site pruritus [Recovered/Resolved]
  - Application site hypersensitivity [Recovered/Resolved]
  - Application site burn [Recovered/Resolved]
  - Application site exfoliation [Recovering/Resolving]

NARRATIVE: CASE EVENT DATE: 201603
